FAERS Safety Report 9288756 (Version 1)
Quarter: 2013Q2

REPORT INFORMATION
  Report Type: Spontaneous
  Country: US (occurrence: None)
  Receive Date: 20130509
  Receipt Date: 20130509
  Transmission Date: 20140414
  Serious: Yes (Other)
  Sender: FDA-Public Use
  Company Number: FK201301394

PATIENT
  Age: 59 Year
  Sex: Male

DRUGS (2)
  1. BUPIVACAINE [Suspect]
     Indication: ARTHROSCOPIC SURGERY
     Dosage: 10 ML, 1;500,000. OTHER
  2. MEPIVACAINE [Suspect]
     Indication: ARTHROSCOPIC SURGERY
     Dosage: OTHER?

REACTIONS (2)
  - Phrenic nerve paralysis [None]
  - Anaesthetic complication [None]
